FAERS Safety Report 4423765-1 (Version None)
Quarter: 2004Q3

REPORT INFORMATION
  Report Type: 
  Country: None (occurrence: None)
  Receive Date: 20040714
  Receipt Date: 20040607
  Transmission Date: 20050211
  Serious: Yes (Other)
  Sender: FDA-Public Use
  Company Number: HQWYE395309JUN04

PATIENT
  Age: 57 Year
  Sex: Female
  Weight: 72.64 kg

DRUGS (9)
  1. ALAVERT [Suspect]
     Indication: EYE PRURITUS
     Dosage: 1 TABLET X 1, ORAL; 1 TABLET X 1, ORAL
     Route: 048
     Dates: start: 20040531, end: 20040531
  2. ALAVERT [Suspect]
     Indication: LACRIMATION INCREASED
     Dosage: 1 TABLET X 1, ORAL; 1 TABLET X 1, ORAL
     Route: 048
     Dates: start: 20040531, end: 20040531
  3. ALAVERT [Suspect]
     Indication: RHINORRHOEA
     Dosage: 1 TABLET X 1, ORAL; 1 TABLET X 1, ORAL
     Route: 048
     Dates: start: 20040531, end: 20040531
  4. ALAVERT [Suspect]
     Indication: THROAT IRRITATION
     Dosage: 1 TABLET X 1, ORAL; 1 TABLET X 1, ORAL
     Route: 048
     Dates: start: 20040531, end: 20040531
  5. ALAVERT [Suspect]
     Indication: EYE PRURITUS
     Dosage: 1 TABLET X 1, ORAL; 1 TABLET X 1, ORAL
     Route: 048
     Dates: start: 20040601, end: 20040601
  6. ALAVERT [Suspect]
     Indication: LACRIMATION INCREASED
     Dosage: 1 TABLET X 1, ORAL; 1 TABLET X 1, ORAL
     Route: 048
     Dates: start: 20040601, end: 20040601
  7. ALAVERT [Suspect]
     Indication: RHINORRHOEA
     Dosage: 1 TABLET X 1, ORAL; 1 TABLET X 1, ORAL
     Route: 048
     Dates: start: 20040601, end: 20040601
  8. ALAVERT [Suspect]
     Indication: THROAT IRRITATION
     Dosage: 1 TABLET X 1, ORAL; 1 TABLET X 1, ORAL
     Route: 048
     Dates: start: 20040601, end: 20040601
  9. PREMARIN [Concomitant]

REACTIONS (1)
  - PRURITUS [None]
